FAERS Safety Report 4734778-4 (Version None)
Quarter: 2005Q3

REPORT INFORMATION
  Report Type: 
  Country: None (occurrence: None)
  Receive Date: 20050804
  Receipt Date: 20050730
  Transmission Date: 20060218
  Serious: Yes (Other)
  Sender: FDA-Public Use
  Company Number: GB-GLAXOSMITHKLINE-B0389361A

PATIENT
  Age: 60 Year
  Sex: Male

DRUGS (1)
  1. ZYBAN [Suspect]
     Route: 048

REACTIONS (2)
  - LOSS OF CONSCIOUSNESS [None]
  - SYNCOPE [None]
